FAERS Safety Report 4950746-1 (Version None)
Quarter: 2006Q1

REPORT INFORMATION
  Report Type: 
  Country: None (occurrence: None)
  Receive Date: 20060322
  Receipt Date: 20051114
  Transmission Date: 20060701
  Serious: Yes (Life-Threatening, Hospitalization)
  Sender: FDA-Public Use
  Company Number: JP-ROCHE-424734

PATIENT
  Age: 80 Year
  Sex: Female

DRUGS (5)
  1. PERDIPINE [Suspect]
     Indication: HYPERTENSION
     Route: 048
     Dates: start: 20050929, end: 20050930
  2. DIOVAN [Suspect]
     Indication: HYPERTENSION
     Route: 048
     Dates: end: 20050929
  3. DIOVAN [Suspect]
     Route: 048
  4. DIOVAN [Suspect]
     Route: 048
     Dates: start: 20030611
  5. FELODIPINE [Suspect]
     Indication: DRUG USE FOR UNKNOWN INDICATION
     Route: 048
     Dates: start: 20050611, end: 20050920

REACTIONS (2)
  - BILE DUCT STONE [None]
  - LIVER DISORDER [None]
